FAERS Safety Report 23998089 (Version 1)
Quarter: 2024Q2

REPORT INFORMATION
  Report Type: Spontaneous
  Country: US (occurrence: US)
  Receive Date: 20240621
  Receipt Date: 20240621
  Transmission Date: 20240716
  Serious: No
  Sender: FDA-Public Use
  Company Number: US-ABBVIE-5805966

PATIENT
  Age: 91 Year
  Sex: Female

DRUGS (3)
  1. RESTASIS [Suspect]
     Active Substance: CYCLOSPORINE
     Indication: Dry eye
     Dosage: STRENGTH: 0.5MG/ML, FREQUENCY: ONCE IN THE MORNING
     Route: 047
     Dates: start: 202406
  2. RESTASIS [Suspect]
     Active Substance: CYCLOSPORINE
     Dosage: STRENGTH: 0.5MG/ML, FREQUENCY: ONCE IN THE MORNING AND EVENING
     Route: 047
     Dates: start: 20240612
  3. LATANOPROST [Suspect]
     Active Substance: LATANOPROST
     Indication: Product used for unknown indication
     Dosage: FREQUENCY: IN THE EVENING
     Route: 047

REACTIONS (2)
  - Eye irritation [Recovered/Resolved]
  - Eye pain [Recovered/Resolved]

NARRATIVE: CASE EVENT DATE: 20240612
